FAERS Safety Report 19453763 (Version 1)
Quarter: 2021Q2

REPORT INFORMATION
  Report Type: Spontaneous
  Country: TW (occurrence: TW)
  Receive Date: 20210623
  Receipt Date: 20210623
  Transmission Date: 20210717
  Serious: Yes (Life-Threatening, Other)
  Sender: FDA-Public Use
  Company Number: TW-GLAXOSMITHKLINE-TW2021APC134981

PATIENT
  Age: 71 Year
  Sex: Male
  Weight: 70.4 kg

DRUGS (4)
  1. GENTAMYCIN INJECTION (GENTAMICIN SULFATE) [Suspect]
     Active Substance: GENTAMICIN SULFATE
     Indication: PROPHYLAXIS
     Dosage: 240 MG, QD
     Route: 042
     Dates: start: 20210510, end: 20210511
  2. CEFTAZIDIME. [Suspect]
     Active Substance: CEFTAZIDIME
     Indication: PROPHYLAXIS
     Dosage: 1.0 G, TID, ONCE EVERY 8 HOUR
     Route: 042
     Dates: start: 20210510, end: 20210514
  3. AVODART [Suspect]
     Active Substance: DUTASTERIDE
     Indication: BENIGN PROSTATIC HYPERPLASIA
     Dosage: 0.5 MG, QD
     Route: 048
     Dates: start: 20210526, end: 20210611
  4. UNASYN TABLETS (SULTAMICILLIN) [Suspect]
     Active Substance: SULTAMICILLIN
     Indication: PROPHYLAXIS
     Dosage: 1 DF, BID, EVERY 12 HR
     Route: 042
     Dates: start: 20210515, end: 20210521

REACTIONS (13)
  - Haematuria [Recovered/Resolved with Sequelae]
  - Blood pressure systolic decreased [Recovered/Resolved with Sequelae]
  - Epistaxis [Recovered/Resolved with Sequelae]
  - Gait disturbance [Recovered/Resolved with Sequelae]
  - Blood count abnormal [Recovered/Resolved with Sequelae]
  - Rash macular [Recovered/Resolved with Sequelae]
  - Condition aggravated [Recovered/Resolved with Sequelae]
  - Hypoacusis [Recovering/Resolving]
  - Hypertension [Unknown]
  - Vertigo [Recovering/Resolving]
  - Tinnitus [Recovering/Resolving]
  - Immune thrombocytopenia [Recovered/Resolved with Sequelae]
  - Haemorrhage urinary tract [Recovering/Resolving]

NARRATIVE: CASE EVENT DATE: 20210609
